FAERS Safety Report 7656912-9 (Version None)
Quarter: 2011Q3

REPORT INFORMATION
  Report Type: 
  Country: None (occurrence: None)
  Receive Date: 20110802
  Receipt Date: 20110718
  Transmission Date: 20111222
  Serious: Yes (Hospitalization)
  Sender: FDA-Public Use
  Company Number: EU-2011-10133

PATIENT
  Sex: Male
  Weight: 92 kg

DRUGS (15)
  1. RAMIPRIL [Concomitant]
  2. DIHYDROCODEINE BITARTRATE INJ [Concomitant]
  3. BISOPROLOL FUMARATE [Concomitant]
  4. POTASSIUM CHLORIDE [Concomitant]
  5. MEROPENEM (MEROPENEM TRIHYDRATE) [Concomitant]
  6. FILGRASTIM [Concomitant]
  7. TOPOTECAN [Suspect]
     Indication: CHEMOTHERAPY
     Dosage: 4.25 MG MILLIGRAM(S), DAILY DOSE, ORAL
     Route: 048
     Dates: start: 20110705, end: 20110710
  8. CYCLIZINE [Concomitant]
  9. ASPIRIN [Concomitant]
  10. ENSURE (NUTRIENTS NOS) [Concomitant]
  11. SAMSCA [Suspect]
     Indication: HYPONATRAEMIA
     Dosage: 15 MG MILLIGRAM(S), DAILY DOSE
     Dates: start: 20110603
  12. DEXAMETHASONE [Concomitant]
  13. SIMVASTATIN [Concomitant]
  14. OMEPRAZOLE [Concomitant]
  15. METACLOPRAMIDE (METOCLOPRAMIDE HYDROCHLORIDE) [Concomitant]

REACTIONS (8)
  - HYPONATRAEMIA [None]
  - HYPOPHAGIA [None]
  - MYALGIA [None]
  - NEUTROPENIC SEPSIS [None]
  - DISEASE RECURRENCE [None]
  - DEHYDRATION [None]
  - VOMITING [None]
  - DRUG INEFFECTIVE [None]
